FAERS Safety Report 6266362-8 (Version None)
Quarter: 2009Q3

REPORT INFORMATION
  Report Type: 
  Country: None (occurrence: None)
  Receive Date: 20090709
  Receipt Date: 20090626
  Transmission Date: 20100115
  Serious: Yes (Hospitalization)
  Sender: FDA-Public Use
  Company Number: 2009001920

PATIENT
  Age: 84 Year
  Sex: Female

DRUGS (13)
  1. TARCEVA [Suspect]
     Indication: LUNG NEOPLASM MALIGNANT
     Dosage: (100 MG, QD), ORAL
     Route: 048
     Dates: start: 20090331
  2. LISINOPRIL [Concomitant]
  3. IMODIUM [Concomitant]
  4. ASPIRIN [Concomitant]
  5. CRESTOR [Concomitant]
  6. ENALAPRIL MALEATE [Concomitant]
  7. BONIVA [Concomitant]
  8. VICODIN [Concomitant]
  9. SIMVASTATIN [Concomitant]
  10. SPIRIVA [Concomitant]
  11. RANITIDINE [Concomitant]
  12. DIPYRIDAMOLE [Concomitant]
  13. ASPIRIN [Concomitant]

REACTIONS (9)
  - ANAEMIA [None]
  - BLOOD CREATININE INCREASED [None]
  - BLOOD UREA INCREASED [None]
  - DUODENAL ULCER HAEMORRHAGE [None]
  - FALL [None]
  - NAUSEA [None]
  - PRESYNCOPE [None]
  - SYNCOPE [None]
  - WHITE BLOOD CELL COUNT INCREASED [None]
